FAERS Safety Report 7164228-2 (Version None)
Quarter: 2010Q4

REPORT INFORMATION
  Report Type: 
  Country: None (occurrence: None)
  Receive Date: 20101203
  Receipt Date: 20101122
  Transmission Date: 20110411
  Serious: Yes (Hospitalization)
  Sender: FDA-Public Use
  Company Number: 022457

PATIENT
  Sex: Female

DRUGS (1)
  1. CIMZIA [Suspect]
     Indication: CROHN'S DISEASE
     Dosage: UNKNOWN DOSE SUBCUTANEOUS
     Route: 058
     Dates: start: 20091015

REACTIONS (2)
  - GASTROINTESTINAL TUBE INSERTION [None]
  - WEIGHT DECREASED [None]
